FAERS Safety Report 6211051-9 (Version None)
Quarter: 2009Q2

REPORT INFORMATION
  Report Type: 
  Country: None (occurrence: None)
  Receive Date: 20090528
  Receipt Date: 20090518
  Transmission Date: 20091009
  Serious: Yes (Hospitalization)
  Sender: FDA-Public Use
  Company Number: SPV1-2009-00970

PATIENT
  Sex: Male

DRUGS (4)
  1. ELAPRASE [Suspect]
     Indication: MUCOPOLYSACCHARIDOSIS II
     Dosage: 1X/WEEK, IV DRIP
     Route: 041
     Dates: start: 20090219
  2. ZYRTEC [Concomitant]
  3. TYLENOL [Concomitant]
  4. PREDNISONE TAB [Concomitant]

REACTIONS (2)
  - CATHETER RELATED INFECTION [None]
  - PYREXIA [None]
